FAERS Safety Report 8804548 (Version 2)
Quarter: 2013Q1

REPORT INFORMATION
  Report Type: Spontaneous
  Country: TR (occurrence: TR)
  Receive Date: 20120924
  Receipt Date: 20130131
  Transmission Date: 20140127
  Serious: Yes (Hospitalization)
  Sender: FDA-Public Use
  Company Number: TR-ABBOTT-12P-161-0980791-00

PATIENT
  Age: 54 Year
  Sex: Male
  Weight: 92 kg

DRUGS (3)
  1. HUMIRA [Suspect]
     Indication: RHEUMATOID ARTHRITIS
     Route: 058
     Dates: start: 20120312
  2. METOART [Concomitant]
     Indication: PRODUCT USED FOR UNKNOWN INDICATION
  3. DELTACORTIL (PREDNISOLON) [Concomitant]
     Indication: PRODUCT USED FOR UNKNOWN INDICATION

REACTIONS (3)
  - Fatigue [Recovering/Resolving]
  - Dyspnoea [Recovering/Resolving]
  - Pneumonia [Unknown]
